FAERS Safety Report 5242595-4 (Version None)
Quarter: 2007Q1

REPORT INFORMATION
  Report Type: 
  Country: None (occurrence: None)
  Receive Date: 20070214
  Receipt Date: 20070206
  Transmission Date: 20070707
  Serious: Yes (Death, Other)
  Sender: FDA-Public Use
  Company Number: 2007SP002286

PATIENT
  Age: 86 Year
  Sex: Female

DRUGS (2)
  1. INTEGRILIN [Suspect]
     Indication: DRUG USE FOR UNKNOWN INDICATION
     Dates: start: 20070201, end: 20070201
  2. HEPARIN [Suspect]

REACTIONS (1)
  - VENTRICULAR TACHYCARDIA [None]
